FAERS Safety Report 5145471-0 (Version None)
Quarter: 2006Q4

REPORT INFORMATION
  Report Type: 
  Country: None (occurrence: None)
  Receive Date: 20061101
  Receipt Date: 20061013
  Transmission Date: 20070319
  Serious: Yes (Hospitalization, Other)
  Sender: FDA-Public Use
  Company Number: US200610003074

PATIENT
  Age: 39 Year
  Sex: Female

DRUGS (2)
  1. RALOXIFENE HCL [Suspect]
     Indication: BREAST CANCER
     Dosage: 60 MG, DAILY (1/D)
     Dates: start: 20010301, end: 20041110
  2. RALOXIFENE HCL [Suspect]
     Indication: PROPHYLAXIS
     Dosage: 60 MG, DAILY (1/D)
     Dates: start: 20010301, end: 20041110

REACTIONS (4)
  - AMENORRHOEA [None]
  - BIOPSY BREAST ABNORMAL [None]
  - CYTOLOGY ABNORMAL [None]
  - HYPERPLASIA [None]
